FAERS Safety Report 9436633 (Version 1)
Quarter: 2013Q3

REPORT INFORMATION
  Report Type: Spontaneous
  Country: US (occurrence: None)
  Receive Date: 20130801
  Receipt Date: 20130801
  Transmission Date: 20140515
  Serious: No
  Sender: FDA-Public Use
  Company Number: None

PATIENT
  Age: 67 Year
  Sex: Male

DRUGS (1)
  1. BIAXIN [Suspect]
     Dates: start: 20111219, end: 20111227

REACTIONS (1)
  - Drug-induced liver injury [None]
